FAERS Safety Report 20504660 (Version 1)
Quarter: 2022Q1

REPORT INFORMATION
  Report Type: Spontaneous
  Country: DE (occurrence: DE)
  Receive Date: 20220223
  Receipt Date: 20220223
  Transmission Date: 20220423
  Serious: Yes (Other)
  Sender: FDA-Public Use
  Company Number: DE-SUN PHARMACEUTICAL INDUSTRIES LTD-2022RR-327825

PATIENT
  Age: 34 Year
  Sex: Male
  Weight: 85 kg

DRUGS (1)
  1. SERTRALINE [Suspect]
     Active Substance: SERTRALINE HYDROCHLORIDE
     Indication: Depression
     Dosage: 100MG, UNK
     Route: 048
     Dates: start: 20201101, end: 20210901

REACTIONS (4)
  - Sexual dysfunction [Recovered/Resolved with Sequelae]
  - Erectile dysfunction [Recovered/Resolved]
  - Hormone level abnormal [Recovered/Resolved with Sequelae]
  - Penile size reduced [Recovered/Resolved with Sequelae]

NARRATIVE: CASE EVENT DATE: 20210101
